FAERS Safety Report 7867850-0 (Version None)
Quarter: 2011Q4

REPORT INFORMATION
  Report Type: 
  Country: None (occurrence: None)
  Receive Date: 20111028
  Receipt Date: 20111018
  Transmission Date: 20120403
  Serious: Yes (Hospitalization, Other)
  Sender: FDA-Public Use
  Company Number: US-ACTELION-A-NJ2011-51719

PATIENT

DRUGS (27)
  1. CYMBALTA [Concomitant]
  2. FOLIC ACID [Concomitant]
  3. VITAMIN D [Concomitant]
  4. LASIX [Concomitant]
  5. IRON [Concomitant]
  6. EPOPROSTENOL SODIUM [Suspect]
     Indication: PULMONARY ARTERIAL HYPERTENSION
     Dosage: 24.5 NG/KG, PER MIN
     Route: 041
     Dates: start: 20110617, end: 20110715
  7. DARVOCET [Concomitant]
  8. SEROQUEL [Concomitant]
  9. SPIRONOLACTONE [Concomitant]
  10. CALCARB [Concomitant]
  11. ADVAIR DISKUS 100/50 [Concomitant]
  12. FENTANYL-100 [Concomitant]
  13. MUCINEX [Concomitant]
  14. GABAPENTIN [Concomitant]
  15. POTASSIUM CHLORIDE [Concomitant]
  16. ARANESP [Concomitant]
  17. SILDENAFIL [Concomitant]
  18. ALLOPURINOL [Concomitant]
  19. ALPRAZOLAM [Concomitant]
  20. MIRAPEX [Concomitant]
  21. OXYGEN [Concomitant]
  22. SPIRIVA [Concomitant]
  23. EPOPROSTENOL SODIUM [Suspect]
     Dosage: UNK
     Route: 041
     Dates: start: 20110901
  24. SYNTHROID [Concomitant]
  25. OMEPRAZOLE [Concomitant]
  26. NITROGLYCERIN [Concomitant]
  27. AMBIEN [Concomitant]

REACTIONS (11)
  - OEDEMA PERIPHERAL [None]
  - ANAEMIA [None]
  - EXCORIATION [None]
  - HAEMATOMA [None]
  - CELLULITIS [None]
  - TRANSFUSION [None]
  - ERYTHEMA [None]
  - TENDERNESS [None]
  - FALL [None]
  - GASTROINTESTINAL HAEMORRHAGE [None]
  - SYNCOPE [None]
